FAERS Safety Report 8561109-4 (Version None)
Quarter: 2012Q3

REPORT INFORMATION
  Report Type: 
  Country: None (occurrence: None)
  Receive Date: 20120802
  Receipt Date: 20120606
  Transmission Date: 20120928
  Serious: No
  Sender: FDA-Public Use
  Company Number: US-BRISTOL-MYERS SQUIBB COMPANY-16673170

PATIENT
  Age: 62 Year
  Sex: Female

DRUGS (2)
  1. REYATAZ [Suspect]
     Indication: ACQUIRED IMMUNODEFICIENCY SYNDROME
     Dosage: TABLET
     Dates: start: 20111101
  2. REYATAZ [Suspect]
     Indication: HIV INFECTION
     Dosage: TABLET
     Dates: start: 20111101

REACTIONS (1)
  - ADVERSE EVENT [None]
